FAERS Safety Report 12140636 (Version 4)
Quarter: 2016Q3

REPORT INFORMATION
  Report Type: Spontaneous
  Country: JP (occurrence: JP)
  Receive Date: 20160303
  Receipt Date: 20160915
  Transmission Date: 20161109
  Serious: Yes (Death, Hospitalization)
  Sender: FDA-Public Use
  Company Number: JP-ASTRAZENECA-2016SE22425

PATIENT
  Age: 21837 Day
  Sex: Female

DRUGS (13)
  1. TRAZODONE [Concomitant]
     Active Substance: TRAZODONE HYDROCHLORIDE
     Dates: start: 20130221, end: 20131101
  2. TASMOLIN [Concomitant]
     Active Substance: BIPERIDEN
     Dates: start: 20130127, end: 20131101
  3. BENZALIN [Concomitant]
     Active Substance: NITRAZEPAM
     Dates: start: 20130128, end: 20131101
  4. VEGETAMIN A [Concomitant]
     Active Substance: CHLORPROMAZINE HYDROCHLORIDE\PHENOBARBITAL\PROMETHAZINE
     Dates: start: 20130916, end: 20131101
  5. RIVOTRIL [Concomitant]
     Active Substance: CLONAZEPAM
     Dates: start: 20130809, end: 20131101
  6. RHYTHMY [Concomitant]
     Active Substance: RILMAZAFONE HYDROCHLORIDE
     Dates: start: 20130323, end: 20131101
  7. RISPERDAL [Suspect]
     Active Substance: RISPERIDONE
     Indication: SCHIZOPHRENIA
     Route: 048
     Dates: start: 20130413, end: 20131101
  8. SEROQUEL [Suspect]
     Active Substance: QUETIAPINE FUMARATE
     Indication: SCHIZOPHRENIA
     Dosage: 700 MG PER DAY WITH 100 MG/ 200 MG TABLET ONCE DAILY
     Route: 048
     Dates: start: 20121228, end: 20131101
  9. HALOMONTH [Suspect]
     Active Substance: HALOPERIDOL DECANOATE
     Indication: SCHIZOPHRENIA
     Route: 030
     Dates: start: 20130518, end: 20131101
  10. HALOSTEN [Suspect]
     Active Substance: HALOPERIDOL
     Indication: SCHIZOPHRENIA
     Route: 048
     Dates: start: 20121228, end: 20131101
  11. ZYPREXA [Suspect]
     Active Substance: OLANZAPINE
     Indication: SCHIZOPHRENIA
     Route: 048
     Dates: start: 20130115, end: 20131101
  12. PAXIL [Concomitant]
     Active Substance: PAROXETINE HYDROCHLORIDE
     Dates: start: 20131101, end: 20131101
  13. LEXIN [Concomitant]
     Active Substance: CEPHALEXIN
     Dates: start: 20121228, end: 20131101

REACTIONS (2)
  - Pneumonia aspiration [Fatal]
  - Dysphagia [Fatal]

NARRATIVE: CASE EVENT DATE: 20131126
